FAERS Safety Report 7214825-0 (Version None)
Quarter: 2011Q1

REPORT INFORMATION
  Report Type: 
  Country: None (occurrence: None)
  Receive Date: 20110107
  Receipt Date: 20100310
  Transmission Date: 20110831
  Serious: No
  Sender: FDA-Public Use
  Company Number: A0850535A

PATIENT
  Age: 44 Year
  Sex: Female

DRUGS (2)
  1. ANTICONVULSANT [Suspect]
  2. LOVAZA [Suspect]
     Dates: start: 20100201, end: 20100301

REACTIONS (3)
  - DRUG INTERACTION [None]
  - DRUG INEFFECTIVE [None]
  - MALAISE [None]
